FAERS Safety Report 5777205-0 (Version None)
Quarter: 2008Q2

REPORT INFORMATION
  Report Type: 
  Country: None (occurrence: None)
  Receive Date: 20080618
  Receipt Date: 20080609
  Transmission Date: 20081010
  Serious: Yes (Hospitalization)
  Sender: FDA-Public Use
  Company Number: FR-ELI_LILLY_AND_COMPANY-FR200806001652

PATIENT
  Sex: Female
  Weight: 53 kg

DRUGS (3)
  1. HUMALOG [Suspect]
     Indication: DIABETES MELLITUS
     Dosage: UNK, 3/D
     Route: 058
     Dates: start: 20080320, end: 20080325
  2. HUMALOG [Suspect]
     Dosage: 1.7 IU/KG, DAILY (1/D)
     Route: 058
     Dates: start: 20080326, end: 20080327
  3. LANTUS [Concomitant]
     Indication: DIABETES MELLITUS
     Dosage: UNK, DAILY (1/D)
     Route: 058
     Dates: start: 20080320, end: 20080327

REACTIONS (1)
  - URTICARIA [None]
